FAERS Safety Report 4568242-2 (Version None)
Quarter: 2005Q1

REPORT INFORMATION
  Report Type: 
  Country: None (occurrence: None)
  Receive Date: 20050202
  Receipt Date: 20040813
  Transmission Date: 20050727
  Serious: Yes (Death)
  Sender: FDA-Public Use
  Company Number: PHHO2004CA11524

PATIENT
  Age: 53 Year
  Sex: Male

DRUGS (3)
  1. LITHIUM CARBONATE [Concomitant]
  2. ZOPICLONE [Concomitant]
  3. CLOZARIL [Suspect]
     Indication: PSYCHOTIC DISORDER
     Dosage: 450 MG, QD
     Route: 048
     Dates: start: 20030915

REACTIONS (7)
  - ARRHYTHMIA [None]
  - CARDIAC ARREST [None]
  - DRUG TOXICITY [None]
  - DYSPNOEA [None]
  - LOSS OF CONSCIOUSNESS [None]
  - PALLOR [None]
  - SYNCOPE [None]
